FAERS Safety Report 8114422-9 (Version None)
Quarter: 2012Q1

REPORT INFORMATION
  Report Type: 
  Country: None (occurrence: None)
  Receive Date: 20120206
  Receipt Date: 20120127
  Transmission Date: 20120608
  Serious: No
  Sender: FDA-Public Use
  Company Number: US-BIOGENIDEC-2012BI003537

PATIENT
  Sex: Female

DRUGS (2)
  1. TYSABRI [Suspect]
     Indication: MULTIPLE SCLEROSIS
     Route: 042
     Dates: start: 20100923, end: 20110301
  2. TYSABRI [Suspect]
     Route: 042
     Dates: start: 20110901

REACTIONS (7)
  - BALANCE DISORDER [None]
  - DIZZINESS [None]
  - VISUAL IMPAIRMENT [None]
  - COGNITIVE DISORDER [None]
  - FATIGUE [None]
  - CATARACT [None]
  - MULTIPLE SCLEROSIS RELAPSE [None]
